FAERS Safety Report 7015979-1 (Version None)
Quarter: 2010Q3

REPORT INFORMATION
  Report Type: 
  Country: None (occurrence: None)
  Receive Date: 20100927
  Receipt Date: 20100624
  Transmission Date: 20110219
  Serious: No
  Sender: FDA-Public Use
  Company Number: US-ASTRAZENECA-2009UW09368

PATIENT
  Age: 72 Year
  Sex: Female
  Weight: 81.6 kg

DRUGS (8)
  1. ARIMIDEX [Suspect]
     Route: 048
     Dates: start: 20080201
  2. ZOCOR [Concomitant]
     Indication: HYPERCHOLESTEROLAEMIA
  3. PAXIL [Concomitant]
     Indication: DEPRESSION
  4. PAXIL [Concomitant]
     Indication: ANXIETY
  5. CENTRUM SILVER [Concomitant]
  6. LOVAZA [Concomitant]
  7. CALCIUM WITH VITAMIN D [Concomitant]
  8. ADVAIR DISKUS 100/50 [Concomitant]

REACTIONS (10)
  - ARTHRALGIA [None]
  - COUGH [None]
  - DYSPHONIA [None]
  - DYSPNOEA [None]
  - FATIGUE [None]
  - GASTROOESOPHAGEAL REFLUX DISEASE [None]
  - INCREASED UPPER AIRWAY SECRETION [None]
  - NASOPHARYNGITIS [None]
  - PAIN IN EXTREMITY [None]
  - TOOTH ABSCESS [None]
